FAERS Safety Report 5670350-X (Version None)
Quarter: 2008Q1

REPORT INFORMATION
  Report Type: 
  Country: None (occurrence: None)
  Receive Date: 20080314
  Receipt Date: 20080314
  Transmission Date: 20080703
  Serious: Yes (Death, Life-Threatening, Hospitalization)
  Sender: FDA-Public Use
  Company Number: None

PATIENT
  Age: 65 Year
  Sex: Female
  Weight: 43.5453 kg

DRUGS (2)
  1. TYGACIL [Suspect]
     Indication: PNEUMONIA
     Dosage: 100 MG LOAD, THEN 50 MG DAILY IV DRIP
     Route: 041
     Dates: start: 20080219, end: 20080225
  2. TYGACIL [Suspect]
     Indication: SEPSIS
     Dosage: 100 MG LOAD, THEN 50 MG DAILY IV DRIP
     Route: 041
     Dates: start: 20080219, end: 20080225

REACTIONS (8)
  - DIALYSIS [None]
  - DISSEMINATED INTRAVASCULAR COAGULATION [None]
  - ENCEPHALOPATHY [None]
  - PANCREATITIS [None]
  - REFUSAL OF TREATMENT BY RELATIVE [None]
  - RENAL FAILURE [None]
  - RESPIRATORY FAILURE [None]
  - SEPSIS [None]
